FAERS Safety Report 8217461-2 (Version None)
Quarter: 2012Q1

REPORT INFORMATION
  Report Type: 
  Country: None (occurrence: None)
  Receive Date: 20120301
  Receipt Date: 20110414
  Transmission Date: 20120608
  Serious: Yes (Other)
  Sender: FDA-Public Use
  Company Number: 2011BH011215

PATIENT
  Age: 61 Year
  Sex: Female
  Weight: 53.18 kg

DRUGS (2)
  1. ARALAST NP [Suspect]
     Dosage: 3147 MG; EVERY WEEK; IV, 3147 MG; EVERY WEEK IV
     Route: 042
     Dates: start: 20110403, end: 20110403
  2. ARALAST NP [Suspect]
     Dosage: 3147 MG; EVERY WEEK; IV, 3147 MG; EVERY WEEK IV
     Route: 042
     Dates: start: 20110412, end: 20110412

REACTIONS (4)
  - DYSPNOEA [None]
  - HEADACHE [None]
  - CHILLS [None]
  - PYREXIA [None]
